FAERS Safety Report 9385975 (Version 1)
Quarter: 2013Q3

REPORT INFORMATION
  Report Type: Report from Study
  Country: CA (occurrence: CA)
  Receive Date: 20130705
  Receipt Date: 20130705
  Transmission Date: 20140515
  Serious: Yes (Other)
  Sender: FDA-Public Use
  Company Number: CA-BAXTER-2013BAX026518

PATIENT
  Sex: 0

DRUGS (6)
  1. FORANE [Suspect]
     Indication: GENERAL ANAESTHESIA
  2. PROPOFOL [Suspect]
     Indication: GENERAL ANAESTHESIA
  3. FENTANYL [Suspect]
     Indication: GENERAL ANAESTHESIA
  4. SUFENTANIL [Suspect]
     Indication: GENERAL ANAESTHESIA
  5. REMIFENTANIL [Suspect]
     Indication: GENERAL ANAESTHESIA
  6. ROCURONIUM [Suspect]
     Indication: GENERAL ANAESTHESIA

REACTIONS (1)
  - Myocardial infarction [Unknown]
